FAERS Safety Report 4338315-8 (Version None)
Quarter: 2004Q2

REPORT INFORMATION
  Report Type: 
  Country: None (occurrence: None)
  Receive Date: 20040409
  Receipt Date: 20040330
  Transmission Date: 20050107
  Serious: Yes (Hospitalization)
  Sender: FDA-Public Use
  Company Number: HQWYE292831MAR04

PATIENT
  Age: 54 Year
  Sex: Female

DRUGS (1)
  1. EFFEXOR XR [Suspect]
     Indication: DEPRESSION
     Dosage: ^1 DOSE UNSPECIFIED, DAILY^ ORAL
     Route: 048
     Dates: start: 20030416, end: 20030416

REACTIONS (7)
  - ANGLE CLOSURE GLAUCOMA [None]
  - CONJUNCTIVAL HYPERAEMIA [None]
  - EYE PAIN [None]
  - MIGRAINE [None]
  - PUPIL FIXED [None]
  - PUPILLARY DISORDER [None]
  - VISUAL DISTURBANCE [None]
